FAERS Safety Report 22872076 (Version 4)
Quarter: 2023Q4

REPORT INFORMATION
  Report Type: Spontaneous
  Country: US (occurrence: US)
  Receive Date: 20230828
  Receipt Date: 20231115
  Transmission Date: 20240110
  Serious: No
  Sender: FDA-Public Use
  Company Number: US-PFIZER INC-PV202300145508

PATIENT
  Age: 73 Year
  Sex: Male

DRUGS (2)
  1. INLYTA [Suspect]
     Active Substance: AXITINIB
     Dosage: 5 MG, 2X/DAY (EVERY 12 HOURS, Q12H; W/ PLENTY OF WATER)
     Route: 048
  2. INLYTA [Suspect]
     Active Substance: AXITINIB
     Dosage: 1 TAB PO (PER ORAL) Q (EVERY) 12H
     Route: 048
     Dates: start: 20231026

REACTIONS (1)
  - Hypoacusis [Unknown]
